FAERS Safety Report 13143448 (Version 3)
Quarter: 2017Q2

REPORT INFORMATION
  Report Type: Spontaneous
  Country: US (occurrence: US)
  Receive Date: 20170124
  Receipt Date: 20170421
  Transmission Date: 20170830
  Serious: Yes (Other)
  Sender: FDA-Public Use
  Company Number: US-PFIZER INC-2017031905

PATIENT
  Age: 57 Year
  Sex: Female

DRUGS (1)
  1. LYRICA [Suspect]
     Active Substance: PREGABALIN
     Dosage: 300 MG, DAILY (150 MG, QUANTITY OF 60 AND DAY SUPPLY OF 30, FOR AN UNSPECIFIED INDICATION)

REACTIONS (7)
  - Asthma [Unknown]
  - Cough [Unknown]
  - Viral upper respiratory tract infection [Unknown]
  - Hypersensitivity [Unknown]
  - Ear congestion [Unknown]
  - Rhinorrhoea [Unknown]
  - Pneumonia [Unknown]
